FAERS Safety Report 4648547-7 (Version None)
Quarter: 2005Q2

REPORT INFORMATION
  Report Type: 
  Country: None (occurrence: None)
  Receive Date: 20050427
  Receipt Date: 20050412
  Transmission Date: 20051028
  Serious: Yes (Other)
  Sender: FDA-Public Use
  Company Number: GBS050417125

PATIENT
  Age: 54 Year
  Sex: Female

DRUGS (6)
  1. XIGRIS [Suspect]
     Dates: start: 20050411
  2. ANTIBIOTICS [Concomitant]
  3. HYDROCORTISONE [Concomitant]
  4. RANITIDINE [Concomitant]
  5. ADRENALINE [Concomitant]
  6. NORADRENALINE [Concomitant]

REACTIONS (3)
  - ACTIVATED PARTIAL THROMBOPLASTIN TIME PROLONGED [None]
  - INTERNATIONAL NORMALISED RATIO INCREASED [None]
  - LABORATORY TEST ABNORMAL [None]
